FAERS Safety Report 9910247 (Version 2)
Quarter: 2014Q1

REPORT INFORMATION
  Report Type: Spontaneous
  Country: BR (occurrence: BR)
  Receive Date: 20140219
  Receipt Date: 20140225
  Transmission Date: 20141002
  Serious: No
  Sender: FDA-Public Use
  Company Number: BR-PFIZER INC-2014041388

PATIENT
  Sex: Female

DRUGS (1)
  1. XALATAN [Suspect]
     Dosage: 1.5 UG, ONE DROP IN THE LEFT EYE
     Route: 047

REACTIONS (2)
  - Expired drug administered [Unknown]
  - Intraocular pressure increased [Unknown]
